FAERS Safety Report 6843851-6 (Version None)
Quarter: 2010Q3

REPORT INFORMATION
  Report Type: 
  Country: None (occurrence: None)
  Receive Date: 20100715
  Receipt Date: 20100703
  Transmission Date: 20110219
  Serious: Yes (Other)
  Sender: FDA-Public Use
  Company Number: PHHY2010FR44270

PATIENT
  Sex: Female

DRUGS (1)
  1. FEMARA [Suspect]

REACTIONS (5)
  - ARTHRALGIA [None]
  - MACULOPATHY [None]
  - SPINAL DISORDER [None]
  - VISUAL ACUITY REDUCED [None]
  - VISUAL IMPAIRMENT [None]
